FAERS Safety Report 4517062-3 (Version None)
Quarter: 2004Q4

REPORT INFORMATION
  Report Type: 
  Country: None (occurrence: None)
  Receive Date: 20041130
  Receipt Date: 20041117
  Transmission Date: 20050328
  Serious: Yes (Hospitalization)
  Sender: FDA-Public Use
  Company Number: 2004094076

PATIENT
  Age: 63 Year
  Sex: Female

DRUGS (11)
  1. ZOLOFT [Suspect]
     Indication: ILL-DEFINED DISORDER
     Dosage: 50 MG (1 IN 1 D), ORAL
     Route: 048
     Dates: end: 20040831
  2. FUROSEMIDE [Suspect]
     Indication: ILL-DEFINED DISORDER
     Dosage: 20 MG (40 MG, 1 IN 1D), ORAL
     Route: 048
     Dates: end: 20040831
  3. FENTANYL [Concomitant]
  4. ZOLPIDEM TARTRATE [Concomitant]
  5. OMEPRZAOLE (OMEPRAZOLE) [Concomitant]
  6. PROPRANOLOL [Concomitant]
  7. LEVOTHYROXINE SODIUM [Concomitant]
  8. ACETAMINOPHEN [Concomitant]
  9. CARBOLEVURE (CHARCOAL, ACTIVATED, YEAST DRIED) [Concomitant]
  10. ALUMINIUM MAGNESIUM SILICATE (ALUMINUM MAGNESIUM SILICATE) [Concomitant]
  11. HEPARIN-FRACTION, SODIUM SALT (HEPARIN-FRACTION, SODIUM SALT) [Concomitant]

REACTIONS (10)
  - ANXIETY [None]
  - APPETITE DISORDER [None]
  - DEPRESSED MOOD [None]
  - DIARRHOEA [None]
  - DRUG INTERACTION [None]
  - FEELING ABNORMAL [None]
  - HYPONATRAEMIA [None]
  - SLEEP DISORDER [None]
  - VISUAL DISTURBANCE [None]
  - VOMITING [None]
